FAERS Safety Report 12459988 (Version 1)
Quarter: 2016Q2

REPORT INFORMATION
  Report Type: Spontaneous
  Country: US (occurrence: US)
  Receive Date: 20160613
  Receipt Date: 20160613
  Transmission Date: 20160815
  Serious: No
  Sender: FDA-Public Use
  Company Number: US-PFIZER INC-2016265041

PATIENT
  Age: 59 Year
  Sex: Male

DRUGS (5)
  1. KEPPRA [Suspect]
     Active Substance: LEVETIRACETAM
     Dosage: UNK
  2. DILANTIN [Suspect]
     Active Substance: PHENYTOIN
     Dosage: UNK
  3. IODINE. [Suspect]
     Active Substance: IODINE
     Dosage: UNK
  4. TOPAMAX [Suspect]
     Active Substance: TOPIRAMATE
     Dosage: UNK
  5. MYSOLINE [Suspect]
     Active Substance: PRIMIDONE
     Dosage: UNK

REACTIONS (1)
  - Drug hypersensitivity [Unknown]
